FAERS Safety Report 5849949-3 (Version None)
Quarter: 2008Q3

REPORT INFORMATION
  Report Type: 
  Country: None (occurrence: None)
  Receive Date: 20080815
  Receipt Date: 20080806
  Transmission Date: 20090109
  Serious: Yes (Death, Other)
  Sender: FDA-Public Use
  Company Number: 2008US000199

PATIENT
  Age: 69 Year
  Sex: Male
  Weight: 106.6 kg

DRUGS (1)
  1. AMEVIVE FOR IM (AMEVIVE FOR IM) (ALEFACETPT) INJECTION [Suspect]
     Indication: PSORIASIS
     Dosage: 15 MG, WEEKLY, INTRAMUSCULAR
     Route: 030
     Dates: start: 20040520, end: 20040826

REACTIONS (2)
  - ARTERIOSCLEROSIS CORONARY ARTERY [None]
  - MYOCARDIAL INFARCTION [None]
